FAERS Safety Report 7578755-7 (Version None)
Quarter: 2011Q2

REPORT INFORMATION
  Report Type: 
  Country: None (occurrence: None)
  Receive Date: 20110628
  Receipt Date: 20110622
  Transmission Date: 20111010
  Serious: Yes (Other)
  Sender: FDA-Public Use
  Company Number: US-PFIZER INC-2011139813

PATIENT
  Sex: Female

DRUGS (3)
  1. WELLBUTRIN [Concomitant]
     Dosage: UNK
  2. LAMICTAL [Concomitant]
     Dosage: UNK
  3. GEODON [Suspect]
     Indication: MAJOR DEPRESSION
     Dosage: 120 MG PER DAY

REACTIONS (1)
  - EXTRAPYRAMIDAL DISORDER [None]
